FAERS Safety Report 4462931-6 (Version None)
Quarter: 2004Q3

REPORT INFORMATION
  Report Type: 
  Country: None (occurrence: None)
  Receive Date: 20040927
  Receipt Date: 20040915
  Transmission Date: 20050211
  Serious: Yes (Hospitalization)
  Sender: FDA-Public Use
  Company Number: 209097

PATIENT
  Age: 63 Year
  Sex: Male

DRUGS (3)
  1. MABTHERA (RITUXIMAB) CONC FOR SOLUTION FOR INFUSION [Suspect]
     Indication: LYMPHOMA
     Dosage: 1/WEEK, INTRAVENOUS
     Route: 042
  2. BACTRIM [Concomitant]
  3. ACICLOVIR (ACYCLOVIR) [Concomitant]

REACTIONS (1)
  - NEUTROPENIA [None]
